FAERS Safety Report 9690951 (Version 1)
Quarter: 2013Q4

REPORT INFORMATION
  Report Type: Spontaneous
  Country: GB (occurrence: GB)
  Receive Date: 20131115
  Receipt Date: 20131115
  Transmission Date: 20140711
  Serious: Yes (Death)
  Sender: FDA-Public Use
  Company Number: GB-ACTAVIS-2013-21160

PATIENT
  Age: 80 Year
  Sex: Female
  Weight: 57 kg

DRUGS (3)
  1. ZOLEDRONIC ACID (UNKNOWN) [Suspect]
     Indication: OSTEOPOROSIS
     Dosage: 5 MG, UNKNOWN
     Route: 042
     Dates: start: 20130531, end: 20130531
  2. VITAMIN D                          /00107901/ [Concomitant]
     Indication: ARTHRITIS
     Dosage: UNK
     Route: 065
  3. STRONTIUM RANELATE [Concomitant]
     Indication: ARTHRITIS
     Dosage: UNK
     Route: 065

REACTIONS (1)
  - Myocardial infarction [Fatal]
